FAERS Safety Report 5487004-5 (Version None)
Quarter: 2007Q4

REPORT INFORMATION
  Report Type: 
  Country: None (occurrence: None)
  Receive Date: 20071016
  Receipt Date: 20071003
  Transmission Date: 20080405
  Serious: Yes (Death, Congenital Anomaly)
  Sender: FDA-Public Use
  Company Number: GB-RANBAXY-2007RR-10505

PATIENT

DRUGS (3)
  1. ENALAPRIL MALEATE TABLETS 10MG [Suspect]
     Indication: HYPERTENSION
     Dosage: 10 MG, QD
     Route: 064
     Dates: start: 20070201, end: 20070401
  2. LABETALOL [Concomitant]
     Indication: HYPERTENSION
     Dosage: 100 MG, UNK
     Route: 064
     Dates: start: 20070626
  3. METHYLDOPA TABLETS BP 125MG [Concomitant]
     Indication: HYPERTENSION
     Dosage: UNK
     Route: 064
     Dates: start: 20070417

REACTIONS (4)
  - FOETAL CARDIAC DISORDER [None]
  - FOETAL GROWTH RETARDATION [None]
  - OLIGOHYDRAMNIOS [None]
  - PLACENTAL DISORDER [None]
